FAERS Safety Report 9074497 (Version 1)
Quarter: 2013Q1

REPORT INFORMATION
  Report Type: Report from Study
  Country: US (occurrence: US)
  Receive Date: 20130129
  Receipt Date: 20130129
  Transmission Date: 20140127
  Serious: No
  Sender: FDA-Public Use
  Company Number: US-ABBOTT-12P-163-0926460-00

PATIENT
  Age: 70 None
  Sex: Female
  Weight: 81.27 kg

DRUGS (18)
  1. HUMIRA 40 MG/ 0.8 ML PRE-FILLED SYRINGE [Suspect]
     Indication: RHEUMATOID ARTHRITIS
     Dates: start: 20080108, end: 20120314
  2. METHOTREXATE [Concomitant]
     Indication: RHEUMATOID ARTHRITIS
     Dates: end: 20111115
  3. ASMANEX [Concomitant]
     Indication: ASTHMA
  4. ASPIRIN [Concomitant]
     Indication: PRODUCT USED FOR UNKNOWN INDICATION
  5. ASTEPRO [Concomitant]
     Indication: ASTHMA
  6. CALCIUM [Concomitant]
     Indication: SUPPLEMENTATION THERAPY
  7. CARVEDILOL [Concomitant]
     Indication: HYPERTENSION
  8. FOLIC ACID [Concomitant]
     Indication: PRODUCT USED FOR UNKNOWN INDICATION
  9. HYDROCODONE [Concomitant]
     Indication: PRODUCT USED FOR UNKNOWN INDICATION
  10. OMEPRAZOLE [Concomitant]
     Indication: GASTROOESOPHAGEAL REFLUX DISEASE
  11. OCUVITE [Concomitant]
     Indication: SUPPLEMENTATION THERAPY
  12. PLAQUENIL [Concomitant]
     Indication: RHEUMATOID ARTHRITIS
  13. PROAIR [Concomitant]
     Indication: ASTHMA
  14. MULTIVITAMIN [Concomitant]
     Indication: SUPPLEMENTATION THERAPY
  15. SIMVASTATIN [Concomitant]
     Indication: BLOOD CHOLESTEROL INCREASED
  16. MELOXICAM [Concomitant]
     Indication: RHEUMATOID ARTHRITIS
  17. METROGEL [Concomitant]
     Indication: PRODUCT USED FOR UNKNOWN INDICATION
  18. MICARDIS [Concomitant]
     Indication: HYPERTENSION

REACTIONS (5)
  - Rash [Not Recovered/Not Resolved]
  - Blood test [Not Recovered/Not Resolved]
  - Biopsy skin [Not Recovered/Not Resolved]
  - Antiphospholipid antibodies positive [Not Recovered/Not Resolved]
  - Systemic lupus erythematosus [Not Recovered/Not Resolved]
